FAERS Safety Report 5399211-0 (Version None)
Quarter: 2007Q3

REPORT INFORMATION
  Report Type: 
  Country: None (occurrence: None)
  Receive Date: 20070727
  Receipt Date: 20070716
  Transmission Date: 20080115
  Serious: Yes (Hospitalization)
  Sender: FDA-Public Use
  Company Number: AR-JNJFOC-20070507132

PATIENT
  Sex: Female
  Weight: 50 kg

DRUGS (12)
  1. BLINDED; TMC125 [Suspect]
     Indication: HIV INFECTION
     Route: 048
  2. PLACEBO [Suspect]
     Indication: HIV INFECTION
     Route: 048
  3. TMC114 [Suspect]
     Route: 048
  4. TMC114 [Suspect]
     Indication: HIV INFECTION
     Route: 048
  5. RITONAVIR [Suspect]
     Indication: HIV INFECTION
     Route: 048
  6. TENOFOVIR [Concomitant]
     Indication: HIV INFECTION
     Route: 048
  7. ZERIT [Concomitant]
     Route: 048
  8. ZERIT [Concomitant]
     Indication: HIV INFECTION
     Route: 048
  9. ENFUVIRTIDE [Concomitant]
     Indication: HIV INFECTION
     Route: 058
  10. DICLOFENAC SODIUM [Concomitant]
     Indication: ARTHRALGIA
     Route: 048
  11. COMBIVIR [Concomitant]
     Route: 048
  12. COMBIVIR [Concomitant]
     Indication: HIV INFECTION
     Route: 048

REACTIONS (1)
  - OSTEOARTHRITIS [None]
